FAERS Safety Report 4330340-6 (Version None)
Quarter: 2004Q1

REPORT INFORMATION
  Report Type: 
  Country: None (occurrence: None)
  Receive Date: 20040329
  Receipt Date: 20040311
  Transmission Date: 20041129
  Serious: Yes (Death, Life-Threatening)
  Sender: FDA-Public Use
  Company Number: 2004203946JP

PATIENT
  Sex: Male

DRUGS (4)
  1. ADRIACIN (DOXORUBICIN HYDROCHLORIDE) POWDER, STERILE [Suspect]
     Indication: PLEURAL MESOTHELIOMA
     Dosage: IV
     Route: 042
  2. CISPLATIN [Suspect]
     Indication: PLEURAL MESOTHELIOMA
     Dosage: IV
     Route: 042
  3. CYCLOPHOSPHAMIDE [Suspect]
     Indication: PLEURAL MESOTHELIOMA
  4. RADIATION THERAPY (RADIATION THERAPY) [Suspect]
     Indication: PLEURAL MESOTHELIOMA

REACTIONS (2)
  - ANOREXIA [None]
  - PNEUMONIA [None]
